FAERS Safety Report 10298530 (Version 2)
Quarter: 2014Q3

REPORT INFORMATION
  Report Type: Report from Study
  Country: US (occurrence: US)
  Receive Date: 20140711
  Receipt Date: 20140711
  Transmission Date: 20150326
  Serious: Yes (Hospitalization)
  Sender: FDA-Public Use
  Company Number: US-SANOFI-AVENTIS-2013SA075954

PATIENT
  Age: 66 Year
  Sex: Female

DRUGS (7)
  1. DEXILANT [Concomitant]
     Active Substance: DEXLANSOPRAZOLE
  2. CARBIDOPA/LEVODOPA [Concomitant]
     Active Substance: CARBIDOPA\LEVODOPA
  3. AUBAGIO [Suspect]
     Active Substance: TERIFLUNOMIDE
     Indication: MULTIPLE SCLEROSIS
     Dosage: PRODUCT START DATE:-12 DAYS AGO
     Route: 048
     Dates: start: 201306, end: 20140628
  4. AUBAGIO [Suspect]
     Active Substance: TERIFLUNOMIDE
     Indication: MULTIPLE SCLEROSIS
     Dosage: PRODUCT START DATE:-12 DAYS AGO
     Route: 048
     Dates: start: 201306, end: 20140628
  5. AUBAGIO [Suspect]
     Active Substance: TERIFLUNOMIDE
     Indication: MULTIPLE SCLEROSIS
     Dosage: PRODUCT START DATE:-12 DAYS AGO
     Route: 048
     Dates: start: 201306, end: 20140628
  6. DILANTIN [Concomitant]
     Active Substance: PHENYTOIN
  7. AUBAGIO [Suspect]
     Active Substance: TERIFLUNOMIDE
     Indication: MULTIPLE SCLEROSIS
     Dosage: PRODUCT START DATE:-12 DAYS AGO
     Route: 048
     Dates: start: 201306, end: 20140628

REACTIONS (12)
  - Rash [Recovered/Resolved]
  - Respiratory disorder [Recovered/Resolved]
  - Pain in extremity [Not Recovered/Not Resolved]
  - Oropharyngeal pain [Unknown]
  - Chills [Unknown]
  - Frequent bowel movements [Not Recovered/Not Resolved]
  - Faeces discoloured [Unknown]
  - Hypersensitivity [Recovered/Resolved]
  - Nasopharyngitis [Unknown]
  - Alopecia [Unknown]
  - Nausea [Not Recovered/Not Resolved]
  - Cough [Not Recovered/Not Resolved]

NARRATIVE: CASE EVENT DATE: 201307
